FAERS Safety Report 10421142 (Version 3)
Quarter: 2014Q4

REPORT INFORMATION
  Report Type: Report from Study
  Country: CZ (occurrence: CZ)
  Receive Date: 20140830
  Receipt Date: 20141119
  Transmission Date: 20150528
  Serious: Yes (Hospitalization)
  Sender: FDA-Public Use
  Company Number: CZ-ABBVIE-14K-217-1276309-00

PATIENT
  Age: 60 Year
  Sex: Female
  Weight: 86 kg

DRUGS (10)
  1. ROCALTROL [Concomitant]
     Active Substance: CALCITRIOL
     Indication: PRODUCT USED FOR UNKNOWN INDICATION
  2. CORTICOTHERAPY [Suspect]
     Active Substance: CORTICOSTEROID NOS
     Indication: PRODUCT USED FOR UNKNOWN INDICATION
     Route: 065
  3. CORTICOTHERAPY [Suspect]
     Active Substance: CORTICOSTEROID NOS
     Route: 065
  4. ZALDIAR [Concomitant]
     Active Substance: ACETAMINOPHEN\TRAMADOL HYDROCHLORIDE
     Indication: PRODUCT USED FOR UNKNOWN INDICATION
     Dosage: 1-4 TBL PER DAY
  5. PRESTARIUM NEO [Concomitant]
     Indication: PRODUCT USED FOR UNKNOWN INDICATION
     Dosage: 1/2 TBL
  6. LOKREN [Concomitant]
     Active Substance: BETAXOLOL HYDROCHLORIDE
     Indication: PRODUCT USED FOR UNKNOWN INDICATION
     Dosage: 1/2 TBL.
  7. ZALDIAR [Concomitant]
     Active Substance: ACETAMINOPHEN\TRAMADOL HYDROCHLORIDE
     Indication: PRODUCT USED FOR UNKNOWN INDICATION
     Dosage: 1-4 TBL PER DAY
  8. CALCIUM [Concomitant]
     Active Substance: CALCIUM
     Indication: PRODUCT USED FOR UNKNOWN INDICATION
     Route: 048
  9. HUMIRA [Suspect]
     Active Substance: ADALIMUMAB
     Indication: RHEUMATOID ARTHRITIS
     Route: 058
     Dates: start: 20091218, end: 20140502
  10. HELICID [Concomitant]
     Indication: PRODUCT USED FOR UNKNOWN INDICATION

REACTIONS (20)
  - Protein total decreased [Unknown]
  - Pituitary-dependent Cushing^s syndrome [Unknown]
  - Alanine aminotransferase increased [Unknown]
  - Low density lipoprotein increased [Unknown]
  - Blood folate decreased [Unknown]
  - Blood folate decreased [Unknown]
  - White blood cell count increased [Unknown]
  - High density lipoprotein increased [Unknown]
  - Urinary sediment abnormal [Unknown]
  - IgA nephropathy [Recovering/Resolving]
  - Blood potassium increased [Unknown]
  - Myopathy [Unknown]
  - Red blood cell sedimentation rate increased [Recovering/Resolving]
  - Low density lipoprotein increased [Unknown]
  - Renal failure [Recovering/Resolving]
  - Blood uric acid increased [Unknown]
  - Blood cholesterol increased [Unknown]
  - Blood cholesterol increased [Unknown]
  - Haematuria [Recovering/Resolving]
  - Tremor [Unknown]

NARRATIVE: CASE EVENT DATE: 20140321
